FAERS Safety Report 24829625 (Version 1)
Quarter: 2025Q1

REPORT INFORMATION
  Report Type: Spontaneous
  Country: US (occurrence: US)
  Receive Date: 20250110
  Receipt Date: 20250110
  Transmission Date: 20250408
  Serious: Yes (Death, Hospitalization, Other)
  Sender: APOTEX
  Company Number: US-APOTEX-2025AP000160

PATIENT
  Age: 42 Year
  Sex: Male

DRUGS (3)
  1. DIPHENHYDRAMINE [Suspect]
     Active Substance: DIPHENHYDRAMINE
     Indication: Product used for unknown indication
     Route: 048
  2. METHYL ALCOHOL [Suspect]
     Active Substance: METHYL ALCOHOL
     Indication: Product used for unknown indication
     Route: 048
  3. BUPRENORPHINE\NALOXONE [Suspect]
     Active Substance: BUPRENORPHINE\NALOXONE
     Indication: Product used for unknown indication
     Route: 048

REACTIONS (2)
  - Cardio-respiratory arrest [Fatal]
  - Drug abuse [Fatal]

NARRATIVE: CASE EVENT DATE: 20230101
